FAERS Safety Report 5523295-X (Version None)
Quarter: 2007Q4

REPORT INFORMATION
  Report Type: 
  Country: None (occurrence: None)
  Receive Date: 20071121
  Receipt Date: 20071113
  Transmission Date: 20080405
  Serious: Yes (Hospitalization, Other)
  Sender: FDA-Public Use
  Company Number: GB-AVENTIS-200720548GDDC

PATIENT
  Age: 72 Year
  Sex: Male

DRUGS (7)
  1. LEFLUNOMIDE [Suspect]
     Indication: RHEUMATOID ARTHRITIS
     Route: 048
     Dates: start: 20061219, end: 20070921
  2. TRIMEPRAZINE TAB [Concomitant]
     Route: 048
  3. CELECOXIB [Concomitant]
     Indication: RHEUMATOID ARTHRITIS
     Route: 048
  4. FOLIC ACID [Concomitant]
     Route: 048
  5. OMEPRAZOLE [Concomitant]
     Indication: DUODENAL ULCER
     Route: 048
  6. PARACETAMOL [Concomitant]
     Indication: PAIN
     Route: 048
  7. SERETIDE [Concomitant]
     Indication: ASTHMA
     Dosage: DOSE: 1 DOSAGE FORM
     Route: 055

REACTIONS (1)
  - LIVER FUNCTION TEST ABNORMAL [None]
